FAERS Safety Report 15131561 (Version 1)
Quarter: 2018Q3

REPORT INFORMATION
  Report Type: Spontaneous
  Country: DE (occurrence: DE)
  Receive Date: 20180711
  Receipt Date: 20180711
  Transmission Date: 20181010
  Serious: Yes (Death)
  Sender: FDA-Public Use
  Company Number: DE-TEVA-203478ISR

PATIENT
  Age: 68 Year
  Sex: Female

DRUGS (8)
  1. PIPAMPERONE [Suspect]
     Active Substance: PIPAMPERONE
     Dosage: 40 MILLIGRAM DAILY;
  2. DOMPERIDONE [Suspect]
     Active Substance: DOMPERIDONE
     Dosage: 10 MILLIGRAM DAILY;
     Route: 048
  3. OMEPRAZOLE. [Suspect]
     Active Substance: OMEPRAZOLE
     Dosage: 40  DAILY;
  4. CARBIDOPA AND LEVODOPA [Suspect]
     Active Substance: CARBIDOPA\LEVODOPA
     Dosage: 200 MILLIGRAM DAILY;
  5. VALPROIC ACID. [Suspect]
     Active Substance: VALPROIC ACID
     Dosage: 600 MILLIGRAM DAILY;
  6. CLOZAPINE. [Suspect]
     Active Substance: CLOZAPINE
     Route: 048
  7. RIVASTIGMINE. [Suspect]
     Active Substance: RIVASTIGMINE
     Dosage: 6 MILLIGRAM DAILY;
  8. STALEVO [Suspect]
     Active Substance: CARBIDOPA\ENTACAPONE\LEVODOPA
     Dosage: 6X100MG

REACTIONS (1)
  - Subileus [Fatal]

NARRATIVE: CASE EVENT DATE: 20090111
